FAERS Safety Report 9503395 (Version 1)
Quarter: 2013Q3

REPORT INFORMATION
  Report Type: Spontaneous
  Country: US (occurrence: US)
  Receive Date: 20130906
  Receipt Date: 20130906
  Transmission Date: 20140515
  Serious: Yes (Death, Hospitalization)
  Sender: FDA-Public Use
  Company Number: US-BAXTER-2013BAX034854

PATIENT
  Sex: Female

DRUGS (12)
  1. DIANEAL LOW CALCIUM [Suspect]
     Indication: PERITONEAL DIALYSIS
     Route: 033
     Dates: start: 20130827, end: 20130830
  2. DIANEAL LOW CALCIUM [Suspect]
     Indication: PERITONEAL DIALYSIS
  3. DIANEAL LOW CALCIUM [Suspect]
     Indication: PERITONEAL DIALYSIS
     Route: 033
     Dates: start: 20130827, end: 20130830
  4. DIANEAL LOW CALCIUM [Suspect]
     Indication: PERITONEAL DIALYSIS
  5. DIANEAL LOW CALCIUM [Suspect]
     Indication: PERITONEAL DIALYSIS
     Route: 033
     Dates: start: 20130827, end: 20130830
  6. DIANEAL LOW CALCIUM [Suspect]
     Indication: PERITONEAL DIALYSIS
  7. DIANEAL LOW CALCIUM (ULTRABAG) [Suspect]
     Indication: PERITONEAL DIALYSIS
     Route: 033
     Dates: start: 20130827, end: 20130830
  8. DIANEAL LOW CALCIUM (ULTRABAG) [Suspect]
     Indication: PERITONEAL DIALYSIS
  9. DIANEAL LOW CALCIUM (ULTRABAG) [Suspect]
     Indication: PERITONEAL DIALYSIS
     Route: 033
     Dates: start: 20130827, end: 20130830
  10. DIANEAL LOW CALCIUM (ULTRABAG) [Suspect]
     Indication: PERITONEAL DIALYSIS
  11. DIANEAL LOW CALCIUM (ULTRABAG) [Suspect]
     Indication: PERITONEAL DIALYSIS
     Route: 033
     Dates: start: 20130827, end: 20130830
  12. DIANEAL LOW CALCIUM (ULTRABAG) [Suspect]
     Indication: PERITONEAL DIALYSIS

REACTIONS (1)
  - Cardiac failure [Fatal]
